FAERS Safety Report 5749487-2 (Version None)
Quarter: 2008Q2

REPORT INFORMATION
  Report Type: 
  Country: None (occurrence: None)
  Receive Date: 20080527
  Receipt Date: 20080519
  Transmission Date: 20081010
  Serious: Yes (Hospitalization, Other)
  Sender: FDA-Public Use
  Company Number: B0449608A

PATIENT
  Age: 81 Year
  Sex: Female
  Weight: 70 kg

DRUGS (7)
  1. ARIXTRA [Suspect]
     Dosage: 2.5MG PER DAY
     Route: 058
     Dates: start: 20061016, end: 20061118
  2. LEVOTHYROXINE SODIUM [Concomitant]
  3. TENORMIN [Concomitant]
  4. ELISOR [Concomitant]
  5. SYMBICORT [Concomitant]
  6. ANALGESIC [Concomitant]
     Route: 065
  7. MORPHINE [Concomitant]
     Route: 051

REACTIONS (6)
  - DRUG INEFFECTIVE [None]
  - DYSPNOEA [None]
  - HAEMOGLOBIN DECREASED [None]
  - INCISION SITE HAEMORRHAGE [None]
  - PULMONARY EMBOLISM [None]
  - SUBCUTANEOUS HAEMATOMA [None]
